FAERS Safety Report 4442437-0 (Version None)
Quarter: 2004Q3

REPORT INFORMATION
  Report Type: 
  Country: None (occurrence: None)
  Receive Date: 20040903
  Receipt Date: 20040421
  Transmission Date: 20050211
  Serious: Yes (Other)
  Sender: FDA-Public Use
  Company Number: 2004UW09563

PATIENT

DRUGS (1)
  1. CRESTOR [Suspect]
     Dosage: 10 MG PO
     Route: 048

REACTIONS (7)
  - ARTHRALGIA [None]
  - ASTHENIA [None]
  - EYE REDNESS [None]
  - JOINT SWELLING [None]
  - OEDEMA PERIPHERAL [None]
  - PAIN IN EXTREMITY [None]
  - SWELLING FACE [None]
